FAERS Safety Report 17553196 (Version 1)
Quarter: 2020Q1

REPORT INFORMATION
  Report Type: Spontaneous
  Country: US (occurrence: US)
  Receive Date: 20200317
  Receipt Date: 20200317
  Transmission Date: 20200409
  Serious: No
  Sender: FDA-Public Use
  Company Number: US-HISAMITSU-2019-US-017360

PATIENT
  Age: 66 Year
  Sex: Male
  Weight: 86.18 kg

DRUGS (3)
  1. SALONPAS PAIN RELIEF [Suspect]
     Active Substance: MENTHOL\METHYL SALICYLATE
     Indication: ANALGESIC THERAPY
     Dosage: ONE PATCH ON PAINFUL AREA OF BACK
     Route: 061
     Dates: start: 201909, end: 201909
  2. PRAVASTATIN. [Concomitant]
     Active Substance: PRAVASTATIN
  3. VALSARTAN. [Concomitant]
     Active Substance: VALSARTAN

REACTIONS (5)
  - Application site pain [Recovered/Resolved]
  - Application site irritation [Recovered/Resolved]
  - Application site pruritus [Recovered/Resolved]
  - Application site dryness [Recovered/Resolved]
  - Application site erythema [Recovering/Resolving]

NARRATIVE: CASE EVENT DATE: 201909
